FAERS Safety Report 20670416 (Version 2)
Quarter: 2023Q1

REPORT INFORMATION
  Report Type: Spontaneous
  Country: US (occurrence: US)
  Receive Date: 20220404
  Receipt Date: 20230307
  Transmission Date: 20230418
  Serious: No
  Sender: FDA-Public Use
  Company Number: US-ELI_LILLY_AND_COMPANY-US202204001580

PATIENT
  Sex: Female
  Weight: 108.4 kg

DRUGS (5)
  1. HUMALOG [Suspect]
     Active Substance: INSULIN LISPRO
     Indication: Diabetes mellitus
     Dosage: UNK UNK, UNKNOWN
     Route: 058
     Dates: end: 20220228
  2. HUMULIN R [Suspect]
     Active Substance: INSULIN HUMAN
     Indication: Diabetes mellitus
     Dosage: 36 U, DAILY
     Route: 058
     Dates: start: 20220228
  3. HUMULIN R [Suspect]
     Active Substance: INSULIN HUMAN
     Dosage: 36 U, DAILY
     Route: 058
     Dates: start: 20220228
  4. HUMULIN N [Suspect]
     Active Substance: INSULIN HUMAN
     Indication: Diabetes mellitus
     Dosage: 30 U, DAILY
     Route: 058
     Dates: start: 20220328
  5. HUMULIN N [Suspect]
     Active Substance: INSULIN HUMAN
     Dosage: 30 U, DAILY
     Route: 058
     Dates: start: 20220328

REACTIONS (1)
  - Maternal exposure during pregnancy [Recovered/Resolved]
